FAERS Safety Report 24312747 (Version 1)
Quarter: 2024Q3

REPORT INFORMATION
  Report Type: Spontaneous
  Country: US (occurrence: US)
  Receive Date: 20240912
  Receipt Date: 20240912
  Transmission Date: 20241016
  Serious: No
  Sender: ABBVIE
  Company Number: US-ABBVIE-5918361

PATIENT
  Sex: Female

DRUGS (2)
  1. UBRELVY [Suspect]
     Active Substance: UBROGEPANT
     Indication: Migraine
     Route: 048
  2. NURTEC ODT [Suspect]
     Active Substance: RIMEGEPANT SULFATE
     Indication: Migraine
     Dosage: FORM STRENGTH: 75 MG, DISSOLVE ONE TABLET IN MOUTH EVERY OTHER DAY (MAXIMUM 1 TABLET PER DAY)
     Route: 048

REACTIONS (3)
  - Therapeutic product effect incomplete [Unknown]
  - Migraine [Unknown]
  - Therapeutic product effect incomplete [Unknown]
